FAERS Safety Report 6619147-4 (Version None)
Quarter: 2010Q1

REPORT INFORMATION
  Report Type: 
  Country: None (occurrence: None)
  Receive Date: 20100305
  Receipt Date: 20100305
  Transmission Date: 20100710
  Serious: Yes (Other)
  Sender: FDA-Public Use
  Company Number: None

PATIENT
  Age: 21 Year
  Sex: Female
  Weight: 78.0187 kg

DRUGS (1)
  1. HALCION [Suspect]
     Indication: ENDODONTIC PROCEDURE
     Dates: start: 20100303, end: 20100303

REACTIONS (3)
  - AGITATION [None]
  - CRYING [None]
  - EMOTIONAL DISORDER [None]
